FAERS Safety Report 13164685 (Version 2)
Quarter: 2017Q1

REPORT INFORMATION
  Report Type: Spontaneous
  Country: GB (occurrence: GB)
  Receive Date: 20170130
  Receipt Date: 20170308
  Transmission Date: 20170428
  Serious: Yes (Hospitalization)
  Sender: FDA-Public Use
  Company Number: GB-MYLANLABS-2017M1004890

PATIENT

DRUGS (12)
  1. BETAHISTINE DIHYDROCHLORIDE [Concomitant]
     Active Substance: BETAHISTINE
     Indication: PRODUCT USED FOR UNKNOWN INDICATION
     Dosage: NIGHT AND MORNING, ONE
     Dates: start: 201501
  2. OMEPRAZOL                          /00661201/ [Concomitant]
     Active Substance: OMEPRAZOLE
     Indication: PRODUCT USED FOR UNKNOWN INDICATION
     Dosage: NIGHT AND MORNING, ONE
  3. SIMVASTATIN. [Concomitant]
     Active Substance: SIMVASTATIN
     Indication: PRODUCT USED FOR UNKNOWN INDICATION
     Dosage: NIGHT, DISCONTINUED THE SAME DAY AS QUININE
     Dates: end: 20161123
  4. LATANOPROST. [Concomitant]
     Active Substance: LATANOPROST
     Indication: PRODUCT USED FOR UNKNOWN INDICATION
     Dosage: ONE DROP IN EACH EYE  50 MICROGRAMS/ML IN NIGHT
  5. PARACETAMOL [Concomitant]
     Active Substance: ACETAMINOPHEN
     Indication: HEADACHE
     Dosage: ONE OR TWO FOUR TIMES A DAY AS REQUIRED. NIGHT AND MORNING, TWO
  6. QUININE SULFATE. [Concomitant]
     Active Substance: QUININE SULFATE
     Indication: PRODUCT USED FOR UNKNOWN INDICATION
     Dosage: NIGHT, ONE
     Dates: end: 20161123
  7. LEVOTHYROXINE SODIUM. [Concomitant]
     Active Substance: LEVOTHYROXINE SODIUM
     Indication: PRODUCT USED FOR UNKNOWN INDICATION
     Dosage: MORNING; (50 AND 25)
  8. QUININE SULPHATE [Suspect]
     Active Substance: QUININE SULFATE
     Indication: PRODUCT USED FOR UNKNOWN INDICATION
     Dosage: QUININE ONE TABLET TO BE TAKEN AT NIGHT AS REQUIRED
     Dates: start: 2010, end: 20161123
  9. LOSARTAN POTASSIUM. [Concomitant]
     Active Substance: LOSARTAN POTASSIUM
     Indication: PRODUCT USED FOR UNKNOWN INDICATION
     Dosage: MORNING, ONE
  10. TRAMADOL. [Suspect]
     Active Substance: TRAMADOL
     Indication: HEADACHE
     Dosage: TRAMADOL ONE OR TWO FOUR TIMES A DAY AS REQUIRED.
     Dates: start: 2010
  11. CYCLIZINE [Concomitant]
     Active Substance: CYCLIZINE
     Indication: PRODUCT USED FOR UNKNOWN INDICATION
     Dosage: NIGHT AND MORNING, ONE
  12. TRAMADOL HYDROCHLORIDE. [Concomitant]
     Active Substance: TRAMADOL HYDROCHLORIDE
     Indication: HEADACHE
     Dosage: NIGHT AND MORNING, ONE

REACTIONS (8)
  - Vertigo [Recovering/Resolving]
  - Hallucination [Unknown]
  - Vomiting [Unknown]
  - Affective disorder [Unknown]
  - Tremor [Unknown]
  - Vision blurred [Recovering/Resolving]
  - Sleep disorder [Unknown]
  - Nausea [Unknown]
